FAERS Safety Report 4959657-9 (Version None)
Quarter: 2006Q1

REPORT INFORMATION
  Report Type: 
  Country: None (occurrence: None)
  Receive Date: 20060328
  Receipt Date: 20060313
  Transmission Date: 20060701
  Serious: Yes (Death)
  Sender: FDA-Public Use
  Company Number: 2006S1002216

PATIENT
  Age: 54 Year
  Sex: Male

DRUGS (2)
  1. CLOZAPINE [Suspect]
     Indication: SCHIZOAFFECTIVE DISORDER
     Dosage: 50 MG; QD; ORAL
     Route: 048
     Dates: start: 20050601
  2. CLOZAPINE [Suspect]
     Indication: SCHIZOAFFECTIVE DISORDER
     Dosage: 400 MG; BID; ORAL
     Route: 048
     Dates: end: 20050601

REACTIONS (3)
  - ANEURYSM [None]
  - GALLBLADDER OPERATION [None]
  - POST PROCEDURAL COMPLICATION [None]
